FAERS Safety Report 9744407 (Version 1)
Quarter: 2013Q4

REPORT INFORMATION
  Report Type: Spontaneous
  Country: DK (occurrence: DK)
  Receive Date: 20131210
  Receipt Date: 20131210
  Transmission Date: 20140711
  Serious: Yes (Hospitalization)
  Sender: FDA-Public Use
  Company Number: DK-TEVA-448829ISR

PATIENT
  Age: 91 Year
  Sex: Female

DRUGS (1)
  1. ALENDRONAT ^TEVA^ [Suspect]
     Indication: OSTEOPOROSIS
     Route: 048
     Dates: start: 20131031

REACTIONS (3)
  - Discomfort [Unknown]
  - Back pain [Unknown]
  - Haematemesis [Unknown]
